FAERS Safety Report 17473042 (Version 1)
Quarter: 2020Q1

REPORT INFORMATION
  Report Type: Spontaneous
  Country: US (occurrence: US)
  Receive Date: 20200218
  Receipt Date: 20200218
  Transmission Date: 20200409
  Serious: Yes (Hospitalization)
  Sender: FDA-Public Use
  Company Number: None

PATIENT
  Age: 83 Year
  Sex: Male

DRUGS (19)
  1. MAGNESIUM [Concomitant]
     Active Substance: MAGNESIUM
  2. VITAMIN E [Concomitant]
     Active Substance: .ALPHA.-TOCOPHEROL
  3. ESBRIET [Suspect]
     Active Substance: PIRFENIDONE
     Indication: IDIOPATHIC PULMONARY FIBROSIS
     Route: 048
     Dates: start: 20151116
  4. COQ10 [Concomitant]
     Active Substance: UBIDECARENONE
  5. OMEGA 3 [Concomitant]
     Active Substance: OMEGA-3 FATTY ACIDS
  6. TRIAMCINOLONE [Concomitant]
     Active Substance: TRIAMCINOLONE
  7. DORZOLAMIDE [Concomitant]
     Active Substance: DORZOLAMIDE
  8. IBUPROFEN. [Concomitant]
     Active Substance: IBUPROFEN
  9. QUINAPRIL. [Concomitant]
     Active Substance: QUINAPRIL
  10. TIMOLOL MAL [Concomitant]
  11. ASPIRIN. [Concomitant]
     Active Substance: ASPIRIN
  12. OMEPRAZOLE. [Concomitant]
     Active Substance: OMEPRAZOLE
  13. LATANOPROST. [Concomitant]
     Active Substance: LATANOPROST
  14. LEVOTHYROXIN [Concomitant]
     Active Substance: LEVOTHYROXINE
  15. RANITIDINE. [Concomitant]
     Active Substance: RANITIDINE
  16. GLUCOSAMINE [Concomitant]
     Active Substance: GLUCOSAMINE
  17. PROBIOTIC [Concomitant]
     Active Substance: PROBIOTICS NOS
  18. SIMVASTATIN. [Concomitant]
     Active Substance: SIMVASTATIN
  19. VITAMIN C [Concomitant]
     Active Substance: ASCORBIC ACID

REACTIONS (1)
  - Cardiac disorder [None]
